FAERS Safety Report 19001181 (Version 3)
Quarter: 2021Q2

REPORT INFORMATION
  Report Type: Spontaneous
  Country: SE (occurrence: SE)
  Receive Date: 20210312
  Receipt Date: 20210422
  Transmission Date: 20210717
  Serious: No
  Sender: FDA-Public Use
  Company Number: SE-PFIZER INC-2021255915

PATIENT
  Sex: Female

DRUGS (1)
  1. NIVESTIM [Suspect]
     Active Substance: FILGRASTIM
     Dosage: UNK (12 MU/0.2 ML)

REACTIONS (1)
  - Device breakage [Unknown]
